FAERS Safety Report 7634399 (Version 12)
Quarter: 2013Q3

REPORT INFORMATION
  Report Type: Spontaneous
  Country: US (occurrence: US)
  Receive Date: 20101020
  Receipt Date: 20130902
  Transmission Date: 20140515
  Serious: Yes (Hospitalization)
  Sender: FDA-Public Use
  Company Number: US-BIOGENIDEC-2010BI035667

PATIENT
  Age: 66 Year
  Sex: Female

DRUGS (6)
  1. AVONEX [Suspect]
     Indication: MULTIPLE SCLEROSIS
     Route: 030
     Dates: start: 19990815
  2. AVONEX [Suspect]
     Indication: MULTIPLE SCLEROSIS
     Route: 030
     Dates: start: 20010414, end: 200308
  3. AVONEX [Suspect]
     Indication: MULTIPLE SCLEROSIS
     Route: 030
     Dates: start: 200308
  4. AVONEX [Suspect]
     Indication: MULTIPLE SCLEROSIS
     Route: 030
     Dates: start: 200308
  5. AVONEX [Suspect]
     Indication: MULTIPLE SCLEROSIS
     Route: 030
  6. POTASSIUM [Concomitant]
     Indication: BLOOD POTASSIUM DECREASED
     Dates: start: 2007

REACTIONS (53)
  - Scoliosis [Recovered/Resolved]
  - Spinal column stenosis [Unknown]
  - Coronary artery disease [Recovered/Resolved]
  - Acute respiratory distress syndrome [Recovered/Resolved]
  - Myocardial infarction [Recovered/Resolved]
  - Coronary artery dissection [Unknown]
  - Respiratory complication associated with device [Recovered/Resolved]
  - Panic attack [Recovered/Resolved]
  - Drug interaction [Recovered/Resolved]
  - Cardiac disorder [Recovered/Resolved]
  - Hallucination [Recovered/Resolved]
  - Transfusion reaction [Recovered/Resolved]
  - Iatrogenic injury [Recovered/Resolved]
  - Surgery [Recovered/Resolved]
  - Spinal operation [Recovered/Resolved]
  - Gallbladder operation [Recovered/Resolved]
  - Hypotension [Recovered/Resolved]
  - Urinary tract infection [Recovered/Resolved]
  - Pancreatitis [Recovered/Resolved]
  - Nerve compression [Unknown]
  - Body height decreased [Not Recovered/Not Resolved]
  - Procedural haemorrhage [Recovered/Resolved]
  - Back pain [Not Recovered/Not Resolved]
  - Pain in extremity [Recovered/Resolved]
  - Postoperative respiratory failure [Recovered/Resolved]
  - Vomiting [Recovered/Resolved]
  - Diarrhoea [Recovered/Resolved]
  - Arthralgia [Not Recovered/Not Resolved]
  - Asthenia [Unknown]
  - Cognitive disorder [Not Recovered/Not Resolved]
  - Unwanted awareness during anaesthesia [Recovered/Resolved]
  - Fear [Not Recovered/Not Resolved]
  - Abasia [Recovered/Resolved]
  - Gait disturbance [Unknown]
  - Mobility decreased [Recovered/Resolved]
  - Injection site induration [Unknown]
  - Fear of injection [Unknown]
  - Stress [Unknown]
  - Weight decreased [Recovered/Resolved]
  - Dysstasia [Recovered/Resolved]
  - Medical device removal [Recovered/Resolved]
  - Menopause [Not Recovered/Not Resolved]
  - Weight increased [Recovered/Resolved]
  - Breast enlargement [Unknown]
  - Limb asymmetry [Not Recovered/Not Resolved]
  - Fall [Recovered/Resolved]
  - Device dislocation [Not Recovered/Not Resolved]
  - Abnormal dreams [Recovered/Resolved]
  - Limb injury [Recovered/Resolved]
  - Multiple sclerosis relapse [Recovered/Resolved]
  - Anxiety [Unknown]
  - Influenza like illness [Recovered/Resolved]
  - Muscle spasms [Recovered/Resolved]
